FAERS Safety Report 8401850-7 (Version None)
Quarter: 2012Q2

REPORT INFORMATION
  Report Type: 
  Country: None (occurrence: None)
  Receive Date: 20120601
  Receipt Date: 20120521
  Transmission Date: 20120825
  Serious: Yes (Other)
  Sender: FDA-Public Use
  Company Number: JP-PFIZER INC-2012130191

PATIENT
  Age: 74 Year
  Sex: Female

DRUGS (19)
  1. ASPIRIN [Concomitant]
  2. ALLOPURINOL [Concomitant]
  3. MUCOSTA [Concomitant]
  4. LOXONIN [Concomitant]
     Dosage: TAPE
  5. MYTEAR [Concomitant]
  6. CELEBREX [Suspect]
     Indication: MUSCULOSKELETAL PAIN
     Dosage: 100 MG, 2X/DAY
     Route: 048
  7. TANATRIL ^ALGOL^ [Concomitant]
  8. SEDEKOPAN [Concomitant]
  9. CELEBREX [Suspect]
     Indication: BACK PAIN
  10. PROTECADIN [Concomitant]
  11. METFORMIN HYDROCHLORIDE [Concomitant]
  12. JANUVIA [Concomitant]
  13. AMARYL [Concomitant]
  14. OLOPATADINE HCL [Concomitant]
  15. ALFAROL [Concomitant]
  16. TETRAMIDE [Concomitant]
  17. MECOBALAMIN [Concomitant]
  18. CRESTOR [Concomitant]
  19. NILDILART [Concomitant]

REACTIONS (3)
  - NASOPHARYNGITIS [None]
  - ANGINA PECTORIS [None]
  - CARDIAC DISORDER [None]
